FAERS Safety Report 7860656-8 (Version None)
Quarter: 2011Q4

REPORT INFORMATION
  Report Type: 
  Country: None (occurrence: None)
  Receive Date: 20111027
  Receipt Date: 20111013
  Transmission Date: 20120403
  Serious: Yes (Hospitalization)
  Sender: FDA-Public Use
  Company Number: NL-ARROW GEN-2011-16671

PATIENT
  Sex: Male

DRUGS (7)
  1. PLAVIX [Concomitant]
     Indication: PRODUCT USED FOR UNKNOWN INDICATION
  2. ASPIRIN [Concomitant]
     Indication: PRODUCT USED FOR UNKNOWN INDICATION
  3. NORVASC [Suspect]
     Indication: HYPERTENSION
     Dosage: 1.5 POSOLOGIC UNITS
     Route: 048
     Dates: start: 20090101
  4. DOXAZOSIN MESYLATE [Suspect]
     Indication: HYPERTENSION
     Dosage: 2 MG, DAILY
     Route: 048
     Dates: start: 20090101, end: 20110825
  5. NITRODERM [Suspect]
     Indication: HYPERTENSION
     Dosage: 1 POSOLOGIC UNIT, DAILY
     Route: 048
     Dates: start: 20090101
  6. ATENOLOL [Suspect]
     Indication: HYPERTENSION
     Dosage: 25 MG, DAILY
     Route: 048
     Dates: start: 20090101
  7. ATORVASTATIN CALCIUM [Concomitant]
     Indication: PRODUCT USED FOR UNKNOWN INDICATION

REACTIONS (1)
  - HYPOTENSION [None]
